FAERS Safety Report 8146245-9 (Version None)
Quarter: 2012Q1

REPORT INFORMATION
  Report Type: 
  Country: None (occurrence: None)
  Receive Date: 20120217
  Receipt Date: 20111207
  Transmission Date: 20120608
  Serious: No
  Sender: FDA-Public Use
  Company Number: US-ABBOTT-11P-163-0881273-00

PATIENT
  Sex: Male
  Weight: 95.34 kg

DRUGS (2)
  1. SIMCOR [Suspect]
     Indication: BLOOD CHOLESTEROL INCREASED
     Dosage: 500/20, ONCE DAILY
     Dates: start: 20110901, end: 20110901
  2. AZOR [Concomitant]
     Indication: HYPERTENSION

REACTIONS (2)
  - PALPITATIONS [None]
  - FLUSHING [None]
